FAERS Safety Report 10343328 (Version 1)
Quarter: 2014Q3

REPORT INFORMATION
  Report Type: Report from Study
  Country: JP (occurrence: JP)
  Receive Date: 20140725
  Receipt Date: 20140725
  Transmission Date: 20150326
  Serious: No
  Sender: FDA-Public Use
  Company Number: JP-BRISTOL-MYERS SQUIBB COMPANY-21237193

PATIENT
  Age: 24 Year
  Sex: Female

DRUGS (1)
  1. METRELEPTIN [Suspect]
     Active Substance: INVESTIGATIONAL PRODUCT
     Dosage: 0.08 MG/KG-4DAY?0.06 MG/KG-3DAY?0.03 MG/KG-3DAY
     Route: 058

REACTIONS (1)
  - Weight decreased [Unknown]
